FAERS Safety Report 21918761 (Version 6)
Quarter: 2024Q3

REPORT INFORMATION
  Report Type: Spontaneous
  Country: PK (occurrence: PK)
  Receive Date: 20230127
  Receipt Date: 20240717
  Transmission Date: 20241017
  Serious: Yes (Other)
  Sender: AMGEN
  Company Number: PK-PFIZER INC-PV202300013847

PATIENT
  Age: 68 Year
  Sex: Female

DRUGS (13)
  1. ENBREL [Suspect]
     Active Substance: BENZYL ALCOHOL\ETANERCEPT
     Indication: Rheumatoid arthritis
     Dosage: 50 MG, WEEKLY
     Route: 058
     Dates: start: 20221020
  2. ENBREL [Suspect]
     Active Substance: BENZYL ALCOHOL\ETANERCEPT
     Dosage: 50 MG, EVERY 10TH DAY
     Route: 058
  3. HYDROXYCHLOROQUINE SULFATE [Concomitant]
     Active Substance: HYDROXYCHLOROQUINE SULFATE
     Dosage: 200 MG, 1 TAB IN MORNING
  4. FOLIC ACID [Concomitant]
     Active Substance: FOLIC ACID
     Dosage: 5 MG, 1X/DAY AFTER MEAL
  5. SOMNO [Concomitant]
     Dosage: 10 MG, ONCE A DAY
  6. Sunny d [Concomitant]
     Dosage: ONCE A MONTH, AFTER MEAL
  7. RISEK INSTA [Concomitant]
     Dosage: 20 MG, 1 CAP IN MORNING BEFORE MEAL
  8. OSTEOCARE CALCIUM MAGNESIUM VITAMIN D3 [Concomitant]
     Dosage: 1 TAB IN AFTERNOON AFTER MEAL
  9. ALLOPURINOL [Concomitant]
     Active Substance: ALLOPURINOL
     Dosage: 300 MG, ONCE A DAY, AFTER MEAL
  10. PANADOL [Concomitant]
     Active Substance: ACETAMINOPHEN
     Dosage: 500 MG, AFTER MEAL, WHEN REQUIRED
  11. CYTOTREXATE [Concomitant]
     Dosage: 10 MG, WEEKLY
  12. CARA CLOT [Concomitant]
     Dosage: 10 MG, THREE TIMES A WEEK
  13. XEROSTOM SALIVA SUBSTITUTE [Concomitant]
     Indication: Product used for unknown indication
     Dosage: APPLY LOCALLY, 3 TIMES A DAY

REACTIONS (8)
  - Interstitial lung disease [Unknown]
  - Lower respiratory tract infection [Unknown]
  - Drug ineffective [Unknown]
  - Off label use [Unknown]
  - Dyspnoea exertional [Not Recovered/Not Resolved]
  - Productive cough [Not Recovered/Not Resolved]
  - Red blood cell sedimentation rate increased [Unknown]
  - Crepitations [Unknown]
